FAERS Safety Report 5363961-2 (Version None)
Quarter: 2007Q2

REPORT INFORMATION
  Report Type: 
  Country: None (occurrence: None)
  Receive Date: 20070620
  Receipt Date: 20070608
  Transmission Date: 20071010
  Serious: Yes (Hospitalization, Other)
  Sender: FDA-Public Use
  Company Number: AU-PFIZER INC-2007048225

PATIENT
  Age: 80 Year
  Sex: Male

DRUGS (5)
  1. CABASER [Suspect]
  2. LEVODOPA [Suspect]
  3. METFORMIN HCL [Concomitant]
  4. TEMAZEPAM [Concomitant]
  5. ZOLOFT [Concomitant]
     Indication: DEPRESSION

REACTIONS (5)
  - AGGRESSION [None]
  - FALL [None]
  - HALLUCINATION [None]
  - MUSCLE RIGIDITY [None]
  - NIGHTMARE [None]
